FAERS Safety Report 19594611 (Version 2)
Quarter: 2021Q3

REPORT INFORMATION
  Report Type: Spontaneous
  Country: US (occurrence: US)
  Receive Date: 20210722
  Receipt Date: 20210817
  Transmission Date: 20211014
  Serious: Yes (Other)
  Sender: FDA-Public Use
  Company Number: US-SA-2021SA240550

PATIENT
  Age: 58 Year
  Sex: Female

DRUGS (7)
  1. BREOPRIN [Concomitant]
     Active Substance: ASPIRIN
     Dosage: BREO ELLIPTA 100?25MCG BLST W/DEV,
  2. ZYRTEC [Concomitant]
     Active Substance: CETIRIZINE HYDROCHLORIDE
  3. EPINEPHRINE. [Concomitant]
     Active Substance: EPINEPHRINE
     Dosage: 10 MG
  4. ALBUTEROL SULFATE. [Concomitant]
     Active Substance: ALBUTEROL SULFATE
     Indication: ASTHMA
     Dosage: 15 MG
  5. BREO ELLIPTA [Concomitant]
     Active Substance: FLUTICASONE FUROATE\VILANTEROL TRIFENATATE
     Dosage: 15 MG
  6. SINGULAIR [Concomitant]
     Active Substance: MONTELUKAST SODIUM
  7. DUPIXENT [Suspect]
     Active Substance: DUPILUMAB
     Indication: NASAL POLYPS
     Dosage: 300 MG, QOW
     Route: 058
     Dates: start: 202102

REACTIONS (7)
  - Cough variant asthma [Unknown]
  - Dyspnoea [Unknown]
  - Upper respiratory tract infection [Unknown]
  - Pyrexia [Unknown]
  - Cough [Unknown]
  - Choking [Unknown]
  - Pneumonia [Unknown]

NARRATIVE: CASE EVENT DATE: 2021
